FAERS Safety Report 4575942-7 (Version None)
Quarter: 2005Q1

REPORT INFORMATION
  Report Type: 
  Country: None (occurrence: None)
  Receive Date: 20050209
  Receipt Date: 20050203
  Transmission Date: 20050727
  Serious: Yes (Hospitalization)
  Sender: FDA-Public Use
  Company Number: US-JNJFOC-20050201285

PATIENT
  Sex: Female

DRUGS (8)
  1. DURAGESIC [Suspect]
     Route: 062
     Dates: start: 20040801
  2. DURAGESIC [Suspect]
     Route: 062
     Dates: start: 20040801
  3. DURAGESIC [Suspect]
     Route: 062
     Dates: start: 20040801
  4. INDERAL [Concomitant]
  5. REGLAN [Concomitant]
  6. KLONAPIN [Concomitant]
  7. PRILOSEC [Concomitant]
  8. SOMA [Concomitant]

REACTIONS (5)
  - DRUG INEFFECTIVE [None]
  - DYSPNOEA [None]
  - MEDICATION ERROR [None]
  - OEDEMA PERIPHERAL [None]
  - PARAESTHESIA [None]
